FAERS Safety Report 11842709 (Version 1)
Quarter: 2015Q4

REPORT INFORMATION
  Report Type: Spontaneous
  Country: JP (occurrence: JP)
  Receive Date: 20151216
  Receipt Date: 20151216
  Transmission Date: 20160305
  Serious: Yes (Other)
  Sender: FDA-Public Use
  Company Number: JP-SA-2015SA209417

PATIENT
  Sex: Female

DRUGS (4)
  1. LANTUS [Suspect]
     Active Substance: INSULIN GLARGINE
     Route: 058
  2. AMARYL [Suspect]
     Active Substance: GLIMEPIRIDE
     Route: 065
  3. ALLEGRA [Concomitant]
     Active Substance: FEXOFENADINE HYDROCHLORIDE
  4. LOXONIN [Concomitant]
     Active Substance: LOXOPROFEN SODIUM

REACTIONS (4)
  - Hypoglycaemia [Unknown]
  - Urticaria [Unknown]
  - Hypothermia [Unknown]
  - Chest pain [Unknown]
